FAERS Safety Report 9088677 (Version 1)
Quarter: 2013Q1

REPORT INFORMATION
  Report Type: Spontaneous
  Country: US (occurrence: US)
  Receive Date: 20130201
  Receipt Date: 20130201
  Transmission Date: 20140127
  Serious: No
  Sender: FDA-Public Use
  Company Number: US-GALDERMA-US12415547

PATIENT
  Sex: Female
  Weight: 48 kg

DRUGS (2)
  1. EPIDUO [Suspect]
     Indication: ACNE
     Route: 061
     Dates: start: 201210, end: 201210
  2. CETAPHIL [Suspect]
     Route: 061
     Dates: start: 20121001

REACTIONS (6)
  - Rash papular [Recovered/Resolved]
  - Rash [Recovered/Resolved]
  - Skin burning sensation [Recovered/Resolved]
  - Dry skin [Recovered/Resolved]
  - Erythema [Recovered/Resolved]
  - Pain of skin [Recovered/Resolved]
